FAERS Safety Report 9193468 (Version 1)
Quarter: 2013Q1

REPORT INFORMATION
  Report Type: Spontaneous
  Country: US (occurrence: None)
  Receive Date: 20130325
  Receipt Date: 20130325
  Transmission Date: 20140127
  Serious: Yes (Other)
  Sender: FDA-Public Use
  Company Number: None

PATIENT
  Age: 68 Year
  Sex: Male
  Weight: 95.9 kg

DRUGS (2)
  1. RITUXAN [Suspect]
     Indication: B-CELL SMALL LYMPHOCYTIC LYMPHOMA
     Dosage: DAY 1
     Route: 042
     Dates: start: 20120313, end: 20120313
  2. BENDAMUSTINE [Suspect]
     Indication: B-CELL SMALL LYMPHOCYTIC LYMPHOMA
     Dosage: DAY 1 AND 4
     Route: 042
     Dates: start: 20120313, end: 20120313

REACTIONS (2)
  - Actinic keratosis [None]
  - Squamous cell carcinoma [None]
